FAERS Safety Report 6245436-1 (Version None)
Quarter: 2009Q2

REPORT INFORMATION
  Report Type: 
  Country: None (occurrence: None)
  Receive Date: 20090625
  Receipt Date: 20090610
  Transmission Date: 20091009
  Serious: Yes (Hospitalization)
  Sender: FDA-Public Use
  Company Number: PL-MEDIMMUNE-MEDI-0008478

PATIENT
  Sex: Male
  Weight: 5.3 kg

DRUGS (3)
  1. SYNAGIS [Suspect]
     Indication: BRONCHOPULMONARY DYSPLASIA
     Route: 030
     Dates: start: 20090130, end: 20090227
  2. SYNAGIS [Suspect]
     Route: 030
     Dates: start: 20090130
  3. SYNAGIS [Suspect]
     Route: 030
     Dates: start: 20090414

REACTIONS (3)
  - BRONCHITIS [None]
  - PNEUMONIA [None]
  - RESPIRATORY DISORDER [None]
